FAERS Safety Report 17180541 (Version 1)
Quarter: 2019Q4

REPORT INFORMATION
  Report Type: Spontaneous
  Country: CA (occurrence: CA)
  Receive Date: 20191219
  Receipt Date: 20191219
  Transmission Date: 20200122
  Serious: Yes (Hospitalization)
  Sender: FDA-Public Use
  Company Number: CA-APOTEX-2019AP026319

PATIENT
  Age: 66 Year
  Sex: Female

DRUGS (33)
  1. HYDROMORPHONE [Suspect]
     Active Substance: HYDROMORPHONE
     Indication: GENERAL ANAESTHESIA
     Dosage: 4 MG, UNK
     Route: 042
  2. HYDROMORPHONE [Suspect]
     Active Substance: HYDROMORPHONE
     Dosage: UNK 0.2 MG/H FOR 5 DAYS
     Route: 065
  3. METHADONE [Suspect]
     Active Substance: METHADONE HYDROCHLORIDE
     Indication: PRODUCT USED FOR UNKNOWN INDICATION
     Dosage: 5 MG, TID (DAILY)
     Route: 065
  4. DEXMEDETOMIDINE. [Suspect]
     Active Substance: DEXMEDETOMIDINE
     Indication: GENERAL ANAESTHESIA
     Dosage: UNK 0.4 ?G/KG/H
     Route: 065
  5. HYDROMORPHONE [Suspect]
     Active Substance: HYDROMORPHONE
     Dosage: UNK 0.6 MG/H FOR 24 HOURS
     Route: 065
  6. KETAMINE [Suspect]
     Active Substance: KETAMINE
     Dosage: UNK 5 MG/H FOR 24 HOURS
     Route: 065
  7. FERROUS FUMARATE [Concomitant]
     Active Substance: FERROUS FUMARATE
     Indication: PRODUCT USED FOR UNKNOWN INDICATION
     Dosage: UNK
     Route: 065
  8. POLYETHYLENE GLYCOL [Concomitant]
     Active Substance: POLYETHYLENE GLYCOLS
     Indication: PRODUCT USED FOR UNKNOWN INDICATION
     Dosage: UNK
     Route: 065
  9. SUFENTANIL [Suspect]
     Active Substance: SUFENTANIL
     Indication: GENERAL ANAESTHESIA
     Dosage: UNK 0.15 ?G/KG/H
     Route: 065
  10. LIDOCAINE. [Suspect]
     Active Substance: LIDOCAINE
     Indication: GENERAL ANAESTHESIA
     Dosage: 50 MG, UNK
     Route: 042
  11. AMLODIPINE [Concomitant]
     Active Substance: AMLODIPINE BESYLATE
     Indication: PRODUCT USED FOR UNKNOWN INDICATION
     Dosage: UNK
     Route: 065
  12. METFORMIN [Concomitant]
     Active Substance: METFORMIN HYDROCHLORIDE
     Indication: PRODUCT USED FOR UNKNOWN INDICATION
     Dosage: UNK
     Route: 065
  13. OXYCODONE [Suspect]
     Active Substance: OXYCODONE
     Dosage: UNK (5-10 MG) 3 HOURS AS NEEDED
     Route: 048
  14. ACETAMINOPHEN. [Suspect]
     Active Substance: ACETAMINOPHEN
     Indication: ANALGESIC THERAPY
     Dosage: UNK
     Route: 065
  15. IBUPROFEN. [Suspect]
     Active Substance: IBUPROFEN
     Indication: ANALGESIC THERAPY
     Dosage: UNK
     Route: 065
  16. GABAPENTIN. [Suspect]
     Active Substance: GABAPENTIN
     Indication: ANALGESIC THERAPY
     Dosage: UNK
     Route: 065
  17. METHADONE [Suspect]
     Active Substance: METHADONE HYDROCHLORIDE
     Dosage: 8 MG, TID (DAILY)
     Route: 065
  18. METHADONE [Suspect]
     Active Substance: METHADONE HYDROCHLORIDE
     Dosage: 6 MG, TID (DAILY)
     Route: 065
  19. KETAMINE [Suspect]
     Active Substance: KETAMINE
     Indication: GENERAL ANAESTHESIA
     Dosage: 60 MG, UNK
     Route: 042
  20. BUSPIRONE [Concomitant]
     Active Substance: BUSPIRONE HYDROCHLORIDE
     Indication: PRODUCT USED FOR UNKNOWN INDICATION
     Dosage: UNK
     Route: 065
  21. COTRIMOXAZOL [Concomitant]
     Active Substance: SULFAMETHOXAZOLE\TRIMETHOPRIM
     Indication: PRODUCT USED FOR UNKNOWN INDICATION
     Dosage: UNK
     Route: 065
  22. DOCUSATE SODIUM. [Concomitant]
     Active Substance: DOCUSATE SODIUM
     Indication: PRODUCT USED FOR UNKNOWN INDICATION
     Dosage: UNK
     Route: 065
  23. PREGABALIN. [Concomitant]
     Active Substance: PREGABALIN
     Indication: PRODUCT USED FOR UNKNOWN INDICATION
     Dosage: UNK
     Route: 065
  24. OXYCODONE [Suspect]
     Active Substance: OXYCODONE
     Indication: BACK PAIN
     Dosage: 70 MG, QD (DAILY)
     Route: 048
  25. OXYCODONE [Suspect]
     Active Substance: OXYCODONE
     Dosage: 10 MG, PRN
     Route: 048
  26. OXYCODONE [Suspect]
     Active Substance: OXYCODONE
     Dosage: 135-205 MG DAILY
     Route: 048
  27. METHADONE [Suspect]
     Active Substance: METHADONE HYDROCHLORIDE
     Dosage: 24 MG, QD (DAILY)
     Route: 065
  28. CLONIDINE. [Concomitant]
     Active Substance: CLONIDINE
     Indication: PRODUCT USED FOR UNKNOWN INDICATION
     Dosage: UNK
     Route: 065
  29. KETAMINE [Suspect]
     Active Substance: KETAMINE
     Dosage: UNK 2.5 MG/H FOR 24 HOURS
     Route: 065
  30. DALTEPARIN [Concomitant]
     Active Substance: DALTEPARIN
     Indication: PRODUCT USED FOR UNKNOWN INDICATION
     Dosage: UNK
     Route: 065
  31. OXYCODONE [Suspect]
     Active Substance: OXYCODONE
     Dosage: UNK (60-80 MG AS NEEDED)
     Route: 048
  32. KETAMINE [Suspect]
     Active Substance: KETAMINE
     Dosage: UNK  10 MG/H FOR 24 HOURS
     Route: 065
  33. SENNOSIDES A+B [Concomitant]
     Active Substance: SENNOSIDES A AND B
     Indication: PRODUCT USED FOR UNKNOWN INDICATION
     Dosage: UNK
     Route: 065

REACTIONS (5)
  - Withdrawal syndrome [Recovered/Resolved]
  - Therapy partial responder [Unknown]
  - Therapeutic product effect incomplete [Unknown]
  - Pain [Recovered/Resolved]
  - Constipation [Unknown]
